FAERS Safety Report 5701949-X (Version None)
Quarter: 2008Q2

REPORT INFORMATION
  Report Type: 
  Country: None (occurrence: None)
  Receive Date: 20080411
  Receipt Date: 20080401
  Transmission Date: 20081010
  Serious: Yes (Hospitalization)
  Sender: FDA-Public Use
  Company Number: FR-WYE-G01335008

PATIENT
  Sex: Female
  Weight: 10 kg

DRUGS (3)
  1. ADVIL ENFANTS ET NOURRISSONS [Suspect]
     Indication: PYREXIA
     Dosage: UNKNOWN
     Route: 048
     Dates: start: 20080103
  2. AUGMENTIN PAEDIATRIC [Concomitant]
     Dosage: UNKNOWN
     Route: 048
     Dates: start: 20080111
  3. PARACETAMOL [Concomitant]
     Indication: PYREXIA
     Dosage: UNKNOWN
     Route: 048
     Dates: start: 20080101

REACTIONS (6)
  - CHOLESTASIS [None]
  - HAEMOLYTIC ANAEMIA [None]
  - LOBAR PNEUMONIA [None]
  - PLEURAL EFFUSION [None]
  - PNEUMOCOCCAL INFECTION [None]
  - SUPERINFECTION BACTERIAL [None]
